FAERS Safety Report 11030382 (Version 2)
Quarter: 2015Q2

REPORT INFORMATION
  Report Type: Spontaneous
  Country: US (occurrence: None)
  Receive Date: 20150413
  Receipt Date: 20150612
  Transmission Date: 20150821
  Serious: Yes (Hospitalization)
  Sender: FDA-Public Use
  Company Number: US-H14001-15-00526

PATIENT
  Age: 66 Year
  Sex: Male
  Weight: 78.88 kg

DRUGS (9)
  1. RITUXAN [Suspect]
     Active Substance: RITUXIMAB
     Indication: RICHTER^S SYNDROME
     Route: 042
     Dates: start: 20140620, end: 20140621
  2. CYTOXAN [Suspect]
     Active Substance: CYCLOPHOSPHAMIDE
     Indication: RICHTER^S SYNDROME
     Route: 042
     Dates: start: 20140621, end: 20140621
  3. VINCRISTINE (VINCRISTINE) (UNKNOWN) (VINCRISTINE) [Suspect]
     Active Substance: VINCRISTINE
     Indication: RICHTER^S SYNDROME
     Route: 042
     Dates: start: 20140621, end: 20140621
  4. ADRIAMYCIN [Suspect]
     Active Substance: DOXORUBICIN HYDROCHLORIDE
     Indication: RICHTER^S SYNDROME
     Route: 042
     Dates: start: 20140621, end: 20140621
  5. PREDNISONE (PREDNISONE) TABLET [Suspect]
     Active Substance: PREDNISONE
     Indication: RICHTER^S SYNDROME
     Dosage: 100 MG/M2, DAYS 1-5
     Route: 048
     Dates: start: 20140620, end: 20140625
  6. INSULIN ASPART [Concomitant]
     Active Substance: INSULIN ASPART
  7. ALLOPURINOL. [Concomitant]
     Active Substance: ALLOPURINOL
  8. ACETAMINOPHEN (PARACETAMOL) [Concomitant]
     Active Substance: ACETAMINOPHEN
  9. AMOXICILLIN-CLAVULANATE (SPEKTRAMOX) (UNKNOWN) (CLAVULANATE POTASSIUM, AMOXICILLIN TRIHYDRATE) [Concomitant]

REACTIONS (3)
  - Herpes oesophagitis [None]
  - Neutrophil count decreased [None]
  - Blood culture positive [None]

NARRATIVE: CASE EVENT DATE: 20140626
